FAERS Safety Report 8801687 (Version 1)
Quarter: 2012Q4

REPORT INFORMATION
  Report Type: 
  Country: FI (occurrence: FI)
  Receive Date: 20120921
  Receipt Date: 20120921
  Transmission Date: 20130627
  Serious: Yes (Hospitalization)
  Sender: FDA-Public Use
  Company Number: FI-ELI_LILLY_AND_COMPANY-FI201209003027

PATIENT
  Sex: Female

DRUGS (8)
  1. FORSTEO [Suspect]
     Indication: OSTEOPOROSIS
     Dosage: 20 ug, qd
     Route: 058
     Dates: start: 20101012
  2. ALENDRONATE [Concomitant]
     Indication: OSTEOPOROSIS
  3. CALCIUM D [Concomitant]
     Indication: MEDICAL DIET
  4. OXYNORM [Concomitant]
     Indication: PAIN
  5. NORSPAN [Concomitant]
     Indication: PAIN
  6. LYRICA [Concomitant]
  7. CELEBRA [Concomitant]
     Indication: INFLAMMATORY PAIN
  8. OXYCONTIN [Concomitant]

REACTIONS (1)
  - Gastric ulcer [Not Recovered/Not Resolved]
